FAERS Safety Report 16171349 (Version 1)
Quarter: 2019Q2

REPORT INFORMATION
  Report Type: Spontaneous
  Country: US (occurrence: US)
  Receive Date: 20190408
  Receipt Date: 20190408
  Transmission Date: 20190711
  Serious: No
  Sender: FDA-Public Use
  Company Number: US-TARO-2019TAR00024

PATIENT
  Age: 56 Year
  Sex: Female
  Weight: 61.22 kg

DRUGS (3)
  1. FLUOROURACIL TOPICAL CREAM USP 5% [Suspect]
     Active Substance: FLUOROURACIL
     Indication: PRECANCEROUS SKIN LESION
     Dosage: UNK
     Route: 061
  2. FLUOROURACIL TOPICAL CREAM USP 5% [Suspect]
     Active Substance: FLUOROURACIL
     Dosage: ^ONE BLOB ON HER FINGER^, 1X/DAY
     Route: 061
     Dates: start: 201812, end: 201812
  3. VITAMIN D NOS [Concomitant]
     Active Substance: VITAMIN D NOS

REACTIONS (5)
  - Application site erythema [Recovered/Resolved]
  - Inappropriate schedule of product administration [Recovered/Resolved]
  - Application site pain [Recovered/Resolved]
  - Incorrect product administration duration [Recovered/Resolved]
  - Dry skin [Unknown]

NARRATIVE: CASE EVENT DATE: 201812
